FAERS Safety Report 10086181 (Version 1)
Quarter: 2014Q2

REPORT INFORMATION
  Report Type: Spontaneous
  Country: NL (occurrence: NL)
  Receive Date: 20140418
  Receipt Date: 20140418
  Transmission Date: 20141212
  Serious: Yes (Other)
  Sender: FDA-Public Use
  Company Number: NL-TEVA-474558ISR

PATIENT
  Age: 56 Year
  Sex: Female
  Weight: 88 kg

DRUGS (3)
  1. AMOXICILLINE CAPSULE 375MG [Suspect]
     Indication: TOOTH INFECTION
     Dosage: DAY COURSE :RVG:HPK: N.B.
     Route: 048
     Dates: start: 201010, end: 201010
  2. COZAAR TABLET FILMOMHULD  50MG [Concomitant]
     Dosage: ONCE DAILY COZAAR (LOSARTAN), RVG: ; HPK: N.B.
     Route: 048
     Dates: start: 200501
  3. MIRTAZAPINE TABLET 15MG [Concomitant]
     Dosage: TWICE DAILY HALF A TABLET , MIRTAZAPINE 15 MG, RVG: ; HPK: N.B.
     Route: 048
     Dates: start: 200501

REACTIONS (2)
  - Burning mouth syndrome [Recovered/Resolved with Sequelae]
  - Fungal infection [Recovered/Resolved with Sequelae]
